FAERS Safety Report 6086134-7 (Version None)
Quarter: 2009Q1

REPORT INFORMATION
  Report Type: 
  Country: None (occurrence: None)
  Receive Date: 20090217
  Receipt Date: 20090217
  Transmission Date: 20090719
  Serious: Yes (Other)
  Sender: FDA-Public Use
  Company Number: None

PATIENT
  Age: 91 Year
  Sex: Female

DRUGS (1)
  1. ENALAPRIL MALEATE [Suspect]
     Dosage: 10MG 1TQD PO
     Route: 048
     Dates: start: 20050801, end: 20081001

REACTIONS (1)
  - HALLUCINATION [None]
